FAERS Safety Report 5290897-8 (Version None)
Quarter: 2007Q2

REPORT INFORMATION
  Report Type: 
  Country: None (occurrence: None)
  Receive Date: 20070409
  Receipt Date: 20070330
  Transmission Date: 20071010
  Serious: Yes (Hospitalization)
  Sender: FDA-Public Use
  Company Number: CA-PFIZER INC-2007016384

PATIENT
  Sex: Male
  Weight: 97 kg

DRUGS (9)
  1. SU-011,248 [Suspect]
     Indication: RENAL CELL CARCINOMA STAGE UNSPECIFIED
     Route: 048
  2. PANTOPRAZOLE [Concomitant]
     Route: 048
  3. LORAZEPAM [Concomitant]
     Route: 048
     Dates: start: 20050829
  4. BIMATOPROST [Concomitant]
     Dates: start: 20020101
  5. SENOKOT [Concomitant]
     Route: 048
  6. TIMOPTIC [Concomitant]
     Dates: start: 20060207
  7. AMLODIPINE [Concomitant]
     Route: 048
  8. FUROSEMIDE [Concomitant]
     Route: 048
     Dates: start: 20060912
  9. EUCERIN [Concomitant]
     Route: 061

REACTIONS (1)
  - PLEURAL EFFUSION [None]
